FAERS Safety Report 4993935-2 (Version None)
Quarter: 2006Q2

REPORT INFORMATION
  Report Type: 
  Country: None (occurrence: None)
  Receive Date: 20060505
  Receipt Date: 20060403
  Transmission Date: 20061013
  Serious: Yes (Other)
  Sender: FDA-Public Use
  Company Number: US016857

PATIENT
  Age: 10 Year
  Sex: Male
  Weight: 43.2 kg

DRUGS (3)
  1. LAMICTAL [Suspect]
     Indication: BIPOLAR DISORDER
     Dosage: 200MG PER DAY
     Route: 048
     Dates: start: 20040901
  2. GABITRIL [Suspect]
     Indication: ANXIETY
     Dosage: 4MG PER DAY
     Route: 048
     Dates: start: 20041201, end: 20050301
  3. SEROQUEL [Suspect]
     Indication: BIPOLAR DISORDER
     Dosage: 50MG AT NIGHT
     Route: 048
     Dates: start: 20050104

REACTIONS (4)
  - ANXIETY [None]
  - CHROMATOPSIA [None]
  - DRUG INTERACTION [None]
  - NIGHTMARE [None]
